FAERS Safety Report 10355409 (Version 1)
Quarter: 2014Q3

REPORT INFORMATION
  Report Type: Spontaneous
  Country: US (occurrence: US)
  Receive Date: 20140731
  Receipt Date: 20140731
  Transmission Date: 20150326
  Serious: Yes (Other)
  Sender: FDA-Public Use
  Company Number: US-ASTRAZENECA-2014SE54011

PATIENT
  Age: 70 Year
  Sex: Female
  Weight: 61.2 kg

DRUGS (8)
  1. FERROUS SULFATE [Concomitant]
     Active Substance: FERROUS SULFATE\FERROUS SULFATE, DRIED
     Dates: start: 2012
  2. SUBSTITUTE FOR ARIMIDEX [Concomitant]
     Indication: NEOPLASM PROPHYLAXIS
     Dosage: UNKNOWN UNK
     Dates: start: 201405
  3. GENERIC FOR FOSAMAX [Concomitant]
     Indication: BONE DENSITY ABNORMAL
     Dosage: ONCE A WEEK WEEK
     Dates: start: 201405
  4. TUMS [Concomitant]
     Active Substance: CALCIUM CARBONATE
  5. ACTIFED [Concomitant]
     Active Substance: PSEUDOEPHEDRINE HYDROCHLORIDE\TRIPROLIDINE HYDROCHLORIDE
  6. NEXIUM [Suspect]
     Active Substance: ESOMEPRAZOLE MAGNESIUM
     Indication: GASTROOESOPHAGEAL REFLUX DISEASE
     Route: 048
     Dates: start: 2010
  7. PRILOSEC OTC [Suspect]
     Active Substance: OMEPRAZOLE MAGNESIUM
     Indication: GASTROOESOPHAGEAL REFLUX DISEASE
     Dosage: UNK BID
     Route: 048
  8. DEXILANT [Concomitant]
     Active Substance: DEXLANSOPRAZOLE

REACTIONS (10)
  - Body height decreased [Unknown]
  - Hiatus hernia [Unknown]
  - Intentional product misuse [Unknown]
  - Volvulus [Unknown]
  - Gallbladder disorder [Recovered/Resolved]
  - Bone density abnormal [Unknown]
  - Dyspepsia [Not Recovered/Not Resolved]
  - Drug ineffective [Unknown]
  - Cholelithiasis [Recovered/Resolved]
  - Haemorrhage [Unknown]

NARRATIVE: CASE EVENT DATE: 1999
